FAERS Safety Report 9261328 (Version 1)
Quarter: 2013Q2

REPORT INFORMATION
  Report Type: Spontaneous
  Country: US (occurrence: US)
  Receive Date: 20130429
  Receipt Date: 20130429
  Transmission Date: 20140414
  Serious: Yes (Hospitalization, Other)
  Sender: FDA-Public Use
  Company Number: US-BAYER-2013-050778

PATIENT
  Age: 24 Year
  Sex: Female

DRUGS (1)
  1. MIRENA [Suspect]
     Indication: CONTRACEPTION
     Dosage: 20 MCG/24HR, CONT
     Route: 015
     Dates: start: 20120314, end: 20120423

REACTIONS (8)
  - Uterine perforation [None]
  - Medical device complication [None]
  - Injury [None]
  - Pain [None]
  - Emotional distress [None]
  - Fear of disease [None]
  - Anxiety [None]
  - Anhedonia [None]
